FAERS Safety Report 10748167 (Version 1)
Quarter: 2015Q1

REPORT INFORMATION
  Report Type: Spontaneous
  Country: US (occurrence: None)
  Receive Date: 20150120
  Receipt Date: 20150120
  Transmission Date: 20150721
  Serious: No
  Sender: FDA-Public Use
  Company Number: AEGR000780

PATIENT
  Age: 65 Year
  Sex: Female
  Weight: 78 kg

DRUGS (13)
  1. JUXTAPID [Suspect]
     Active Substance: LOMITAPIDE MESYLATE
     Indication: TYPE IIA HYPERLIPIDAEMIA
     Route: 048
     Dates: start: 20140923
  2. AZOR [Concomitant]
     Active Substance: AMLODIPINE BESYLATE\OLMESARTAN MEDOXOMIL
  3. ALDACTONE [Concomitant]
     Active Substance: SPIRONOLACTONE
  4. ZETIA [Concomitant]
     Active Substance: EZETIMIBE
  5. WELCHOL (COLESEVELAM HYDROCHLORIDE) [Concomitant]
  6. PRISTIQ (DESVENLAFAXINE) [Concomitant]
  7. JANUVIA [Concomitant]
     Active Substance: SITAGLIPTIN PHOSPHATE
  8. TANZEUM (ALBIGLUTIDE) [Concomitant]
  9. INDAPAMIDE. [Concomitant]
     Active Substance: INDAPAMIDE
  10. SLO-NIACIN (NICOTINIC ACID) [Concomitant]
  11. VIVELLE DOT (ESTRADIOL) [Concomitant]
  12. LASIX [Concomitant]
     Active Substance: FUROSEMIDE
  13. VITAMIN D (COLECALCIFEROL) [Concomitant]

REACTIONS (2)
  - Diarrhoea [None]
  - Nausea [None]

NARRATIVE: CASE EVENT DATE: 20140923
